FAERS Safety Report 9263210 (Version 4)
Quarter: 2013Q2

REPORT INFORMATION
  Report Type: Report from Study
  Country: US (occurrence: US)
  Receive Date: 20130430
  Receipt Date: 20130601
  Transmission Date: 20140414
  Serious: Yes (Other)
  Sender: FDA-Public Use
  Company Number: US-ROCHE-1217769

PATIENT
  Sex: Female

DRUGS (1)
  1. BEVACIZUMAB [Suspect]
     Indication: AGE-RELATED MACULAR DEGENERATION
     Route: 050

REACTIONS (5)
  - Eye discharge [Unknown]
  - Suspected transmission of an infectious agent via product [Unknown]
  - Visual acuity reduced [Unknown]
  - Eye disorder [Unknown]
  - Product quality issue [Unknown]
